FAERS Safety Report 6870557-X (Version None)
Quarter: 2010Q3

REPORT INFORMATION
  Report Type: 
  Country: None (occurrence: None)
  Receive Date: 20100723
  Receipt Date: 20100712
  Transmission Date: 20110219
  Serious: Yes (Hospitalization)
  Sender: FDA-Public Use
  Company Number: US-ELI_LILLY_AND_COMPANY-US201007003662

PATIENT
  Sex: Male

DRUGS (6)
  1. FORTEO [Suspect]
     Indication: OSTEOPOROSIS
     Dosage: 20 UG, DAILY (1/D)
     Route: 065
     Dates: start: 20090901
  2. PREDNISONE [Concomitant]
     Dosage: 15 MG, DAILY (1/D)
     Route: 065
  3. NEUROTIN                           /00949202/ [Concomitant]
     Dosage: 300 MG, 3/D
     Route: 065
  4. ZOLOFT [Concomitant]
     Dosage: 100 MG, DAILY (1/D)
     Route: 065
  5. AMBIEN [Concomitant]
     Dosage: 12.5 MG, AS NEEDED
     Route: 065
  6. LUNESTA [Concomitant]
     Dosage: UNK, AS NEEDED
     Route: 065

REACTIONS (3)
  - COMA [None]
  - CONVULSION [None]
  - PAIN [None]
